FAERS Safety Report 12070955 (Version 3)
Quarter: 2016Q2

REPORT INFORMATION
  Report Type: Report from Study
  Country: NL (occurrence: NL)
  Receive Date: 20160211
  Receipt Date: 20160422
  Transmission Date: 20160815
  Serious: Yes (Other)
  Sender: FDA-Public Use
  Company Number: NL-ABBVIE-16P-114-1554752-00

PATIENT
  Age: 71 Year
  Sex: Male

DRUGS (2)
  1. DUODOPA [Suspect]
     Active Substance: CARBIDOPA\LEVODOPA
     Indication: PARKINSON^S DISEASE
     Dosage: 20/5MG/ML; CONTINUOUS; SEE NARRATIVE
     Route: 050
     Dates: start: 20100331
  2. CLOZAPINE. [Concomitant]
     Active Substance: CLOZAPINE
     Indication: AFFECTIVE DISORDER

REACTIONS (15)
  - On and off phenomenon [Not Recovered/Not Resolved]
  - Dyskinesia [Not Recovered/Not Resolved]
  - Affective disorder [Not Recovered/Not Resolved]
  - Musculoskeletal stiffness [Not Recovered/Not Resolved]
  - Off label use [Not Recovered/Not Resolved]
  - Freezing phenomenon [Not Recovered/Not Resolved]
  - Fall [Unknown]
  - Hand fracture [Unknown]
  - Cognitive disorder [Not Recovered/Not Resolved]
  - Upper limb fracture [Unknown]
  - Dementia [Not Recovered/Not Resolved]
  - Hallucination [Not Recovered/Not Resolved]
  - Mental impairment [Not Recovered/Not Resolved]
  - Balance disorder [Not Recovered/Not Resolved]
  - Fall [Not Recovered/Not Resolved]

NARRATIVE: CASE EVENT DATE: 201601
